FAERS Safety Report 9928219 (Version 1)
Quarter: 2014Q1

REPORT INFORMATION
  Report Type: Spontaneous
  Country: IT (occurrence: IT)
  Receive Date: 20140227
  Receipt Date: 20140227
  Transmission Date: 20141002
  Serious: Yes (Other)
  Sender: FDA-Public Use
  Company Number: IT-BAYER-2014-027117

PATIENT
  Age: 40 Year
  Sex: Male

DRUGS (1)
  1. ACETYLSALICYLIC ACID (} 100 MG) [Suspect]
     Indication: INFLUENZA
     Dosage: 500 MG, ONCE
     Route: 048
     Dates: start: 20140208, end: 20140208

REACTIONS (1)
  - Angioedema [Recovering/Resolving]
